FAERS Safety Report 23824551 (Version 4)
Quarter: 2024Q2

REPORT INFORMATION
  Report Type: Report from Study
  Country: NL (occurrence: NL)
  Receive Date: 20240507
  Receipt Date: 20240524
  Transmission Date: 20240716
  Serious: Yes (Death, Other)
  Sender: FDA-Public Use
  Company Number: NL-ABBVIE-5729915

PATIENT
  Age: 58 Year
  Sex: Female

DRUGS (11)
  1. CARBIDOPA\LEVODOPA [Suspect]
     Active Substance: CARBIDOPA\LEVODOPA
     Indication: Parkinson^s disease
     Dates: start: 20210517, end: 20240403
  2. CARBIDOPA\LEVODOPA [Suspect]
     Active Substance: CARBIDOPA\LEVODOPA
  3. CARBIDOPA\LEVODOPA [Suspect]
     Active Substance: CARBIDOPA\LEVODOPA
     Indication: Parkinson^s disease
     Dosage: LOADD:2.40ML; BIR:0.38ML/H; HIR:0.38ML/H; LIR:0.31ML/H; ED:0.15ML
     Route: 058
     Dates: start: 20240411, end: 20240415
  4. CARBIDOPA\LEVODOPA [Suspect]
     Active Substance: CARBIDOPA\LEVODOPA
     Indication: Parkinson^s disease
     Dosage: LOADD:2.40ML; BIR:0.40ML/H; HIR:0.40ML/H; LIR:0.36ML/H; ED:0.20ML ; TOTAL DOSE: 9.28ML
     Route: 058
     Dates: start: 20240415, end: 20240418
  5. CARBIDOPA\LEVODOPA [Suspect]
     Active Substance: CARBIDOPA\LEVODOPA
     Indication: Parkinson^s disease
     Dosage: LOADD:2.40ML; BIR:0.38ML/H; HIR:0.38ML/H; LIR:0.28ML/H; ED:0.15ML TOTAL DOSE: 9.12ML
     Route: 058
     Dates: start: 20240403, end: 20240404
  6. CARBIDOPA\LEVODOPA [Suspect]
     Active Substance: CARBIDOPA\LEVODOPA
     Indication: Parkinson^s disease
     Dosage: LOADD:2.40ML; BIR:0.32ML/H; HIR:0.32ML/H; LIR:0.20ML/H; ED:0.10ML TOTAL DOSE: 7.68ML. REMAINS AT ...
     Route: 058
     Dates: start: 20240403, end: 20240403
  7. CARBIDOPA\LEVODOPA [Suspect]
     Active Substance: CARBIDOPA\LEVODOPA
     Indication: Parkinson^s disease
     Dosage: LD:2.40ML; BIR:0.46ML/H; HIR:0.46ML/H; LIR:0.36ML/H; ED:0.30ML ; TOTAL DOSE: 10.24ML
     Route: 058
     Dates: start: 20240424, end: 20240425
  8. CARBIDOPA\LEVODOPA [Suspect]
     Active Substance: CARBIDOPA\LEVODOPA
     Indication: Parkinson^s disease
     Dosage: LOADD:2.40ML; BIR:0.38ML/H; HIR:0.38ML/H; LIR:0.30ML/H; ED:0.15ML. REMAINS AT 24 HOURS
     Route: 058
     Dates: start: 20240404, end: 20240411
  9. CARBIDOPA\LEVODOPA [Suspect]
     Active Substance: CARBIDOPA\LEVODOPA
     Indication: Parkinson^s disease
     Dosage: LD:2.40ML; BIR:0.43ML/H; HIR:0.46ML/H; LIR:0.36ML/H; ED:0.30ML
     Route: 058
     Dates: start: 20240425
  10. CARBIDOPA\LEVODOPA [Suspect]
     Active Substance: CARBIDOPA\LEVODOPA
     Indication: Parkinson^s disease
     Dosage: LOADD:2.40ML; BIR:0.43ML/H; HIR:0.43ML/H; LIR:0.36ML/H; ED:0.30ML ; TOTAL DOSE: 9.76ML. REMAINS A...
     Route: 058
     Dates: start: 20240418, end: 20240424
  11. SINEMET [Concomitant]
     Active Substance: CARBIDOPA\LEVODOPA
     Indication: Parkinson^s disease
     Dosage: TIME INTERVAL: 0.16666667 DAYS

REACTIONS (6)
  - Euthanasia [Fatal]
  - Feeling abnormal [Not Recovered/Not Resolved]
  - Ill-defined disorder [Not Recovered/Not Resolved]
  - Cognitive disorder [Not Recovered/Not Resolved]
  - Ill-defined disorder [Not Recovered/Not Resolved]
  - Suicidal ideation [Not Recovered/Not Resolved]

NARRATIVE: CASE EVENT DATE: 20240401
